FAERS Safety Report 10046157 (Version 1)
Quarter: 2014Q1

REPORT INFORMATION
  Report Type: Spontaneous
  Country: US (occurrence: US)
  Receive Date: 20140331
  Receipt Date: 20140331
  Transmission Date: 20141002
  Serious: Yes (Hospitalization)
  Sender: FDA-Public Use
  Company Number: US-BIOGENIDEC-2014BI027202

PATIENT
  Age: 53 Year
  Sex: Female
  Weight: 76 kg

DRUGS (1)
  1. TECFIDERA [Suspect]
     Indication: MULTIPLE SCLEROSIS
     Route: 048
     Dates: start: 201312

REACTIONS (5)
  - Intervertebral disc operation [Unknown]
  - Depressed mood [Unknown]
  - Abdominal discomfort [Unknown]
  - Mood altered [Unknown]
  - Optic neuritis [Unknown]
